FAERS Safety Report 11795575 (Version 1)
Quarter: 2015Q4

REPORT INFORMATION
  Report Type: Spontaneous
  Country: US (occurrence: US)
  Receive Date: 20151202
  Receipt Date: 20151202
  Transmission Date: 20160305
  Serious: Yes (Life-Threatening, Other)
  Sender: FDA-Public Use
  Company Number: US-009507513-1006USA03080

PATIENT
  Age: 44 Year
  Sex: Female

DRUGS (5)
  1. MK-3009 [Suspect]
     Active Substance: DAPTOMYCIN
     Indication: BRAIN ABSCESS
     Route: 042
  2. VANCOMYCIN [Suspect]
     Active Substance: VANCOMYCIN
     Indication: BRAIN ABSCESS
  3. ERTAPENEM SODIUM [Suspect]
     Active Substance: ERTAPENEM SODIUM
     Indication: BRAIN ABSCESS
  4. AZTREONAM. [Suspect]
     Active Substance: AZTREONAM
     Indication: BRAIN ABSCESS
  5. METRONIDAZOLE. [Suspect]
     Active Substance: METRONIDAZOLE
     Indication: BRAIN ABSCESS

REACTIONS (1)
  - Drug reaction with eosinophilia and systemic symptoms [Unknown]
